FAERS Safety Report 21235804 (Version 1)
Quarter: 2022Q3

REPORT INFORMATION
  Report Type: Spontaneous
  Country: AR (occurrence: AR)
  Receive Date: 20220821
  Receipt Date: 20220821
  Transmission Date: 20221027
  Serious: Yes (Other)
  Sender: FDA-Public Use
  Company Number: AR-PFIZER INC-PV202200041654

PATIENT
  Age: 69 Year
  Sex: Female

DRUGS (1)
  1. ENBREL [Suspect]
     Active Substance: ETANERCEPT
     Indication: Rheumatoid arthritis
     Dosage: 50 MG, WEEKLY (1 DOSE PER WEEK)
     Route: 065
     Dates: start: 20200201

REACTIONS (3)
  - Deafness [Not Recovered/Not Resolved]
  - Product use complaint [Not Recovered/Not Resolved]
  - Ear infection [Not Recovered/Not Resolved]
